FAERS Safety Report 8951226 (Version 1)
Quarter: 2012Q4

REPORT INFORMATION
  Report Type: 
  Country: US (occurrence: US)
  Receive Date: 20121207
  Receipt Date: 20121207
  Transmission Date: 20130627
  Serious: Yes (Hospitalization)
  Sender: FDA-Public Use
  Company Number: US-NOVOPROD-365557

PATIENT
  Age: 42 Year
  Sex: Female

DRUGS (2)
  1. NOVOLOG [Suspect]
     Indication: TYPE 1 DIABETES MELLITUS
     Dosage: sliding scale
     Route: 058
     Dates: start: 201206
  2. LANTUS [Suspect]
     Indication: TYPE 1 DIABETES MELLITUS
     Dosage: 45 U, qd
     Route: 058
     Dates: start: 201206

REACTIONS (2)
  - Pancreatitis [Recovered/Resolved]
  - Diabetic ketoacidosis [Recovered/Resolved]
